FAERS Safety Report 4599231-X (Version None)
Quarter: 2005Q1

REPORT INFORMATION
  Report Type: 
  Country: None (occurrence: None)
  Receive Date: 20050302
  Receipt Date: 20050302
  Transmission Date: 20050727
  Serious: Yes (Hospitalization)
  Sender: FDA-Public Use
  Company Number: None

PATIENT
  Age: 21 Year
  Sex: Female
  Weight: 58.9676 kg

DRUGS (3)
  1. LAMICTAL [Suspect]
     Indication: CONVULSION IN CHILDHOOD
     Dosage: 1 @ AM / 1 @ PM  ORAL
     Route: 048
     Dates: start: 20040812, end: 20041006
  2. LAMICTAL [Suspect]
     Indication: MYOCLONIC EPILEPSY
     Dosage: 1 @ AM / 1 @ PM  ORAL
     Route: 048
     Dates: start: 20040812, end: 20041006
  3. DEPAKOTE [Suspect]
     Dosage: SAME ORAL
     Route: 048
     Dates: start: 19960501, end: 20050301

REACTIONS (3)
  - DISCOMFORT [None]
  - FEAR [None]
  - STEVENS-JOHNSON SYNDROME [None]
